FAERS Safety Report 9286875 (Version 1)
Quarter: 2013Q2

REPORT INFORMATION
  Report Type: Spontaneous
  Country: US (occurrence: US)
  Receive Date: 20130513
  Receipt Date: 20130513
  Transmission Date: 20140414
  Serious: No
  Sender: FDA-Public Use
  Company Number: US-PFIZER INC-2013145717

PATIENT
  Age: 43 Year
  Sex: Male
  Weight: 86.17 kg

DRUGS (3)
  1. LYRICA [Suspect]
     Indication: FIBROMYALGIA
     Dosage: 150 MG, 2X/DAY
     Route: 048
     Dates: start: 201304
  2. HYDROCODONE [Concomitant]
     Dosage: UNK
  3. PROZAC [Concomitant]
     Dosage: UNK

REACTIONS (1)
  - Pain [Not Recovered/Not Resolved]
